FAERS Safety Report 7445573-X (Version None)
Quarter: 2011Q2

REPORT INFORMATION
  Report Type: 
  Country: None (occurrence: None)
  Receive Date: 20110429
  Receipt Date: 20110420
  Transmission Date: 20111010
  Serious: Yes (Hospitalization)
  Sender: FDA-Public Use
  Company Number: US-ASTRAZENECA-2011SE22581

PATIENT
  Age: 19374 Day
  Sex: Female
  Weight: 143.5 kg

DRUGS (21)
  1. ZD6474 [Suspect]
     Indication: GLIOBLASTOMA
     Route: 048
     Dates: start: 20100217, end: 20100311
  2. COQ10 [Concomitant]
  3. MELATONIN [Concomitant]
  4. NAPROXEN (ALEVE) [Concomitant]
  5. POTASSIUM CHLORIDE [Concomitant]
  6. IMODIUM [Concomitant]
     Indication: DIARRHOEA
  7. LISINOPRIL [Concomitant]
     Indication: HYPERTENSION
  8. VITAMIN B-12 [Concomitant]
  9. ZD6474 [Suspect]
     Route: 048
     Dates: start: 20100315
  10. DEPAKOTE [Concomitant]
  11. FOLIC ACID [Concomitant]
  12. SELENIUM [Concomitant]
  13. COLACE [Concomitant]
     Indication: CONSTIPATION
  14. KEPPRA [Concomitant]
  15. SOMA [Concomitant]
     Indication: RENAL PAIN
  16. HYDROCHLOROTHIAZIDE [Concomitant]
     Indication: OEDEMA PERIPHERAL
  17. FISH OIL [Concomitant]
  18. SENNA [Concomitant]
     Indication: CONSTIPATION
  19. GARLIC [Concomitant]
  20. CARBOPLATIN [Suspect]
     Indication: GLIOBLASTOMA
     Route: 042
     Dates: start: 20100217
  21. IRON [Concomitant]

REACTIONS (1)
  - PARTIAL SEIZURES [None]
